FAERS Safety Report 16845360 (Version 1)
Quarter: 2019Q3

REPORT INFORMATION
  Report Type: Report from Study
  Country: FR (occurrence: FR)
  Receive Date: 20190924
  Receipt Date: 20190924
  Transmission Date: 20191005
  Serious: Yes (Death)
  Sender: FDA-Public Use
  Company Number: FR-PFIZER INC-2019405750

PATIENT
  Age: 47 Year
  Sex: Male

DRUGS (4)
  1. TAZOCILLINE [Suspect]
     Active Substance: PIPERACILLIN SODIUM\TAZOBACTAM SODIUM
     Indication: PNEUMONIA PSEUDOMONAL
  2. ZERBAXA [Suspect]
     Active Substance: CEFTOLOZANE SULFATE\TAZOBACTAM SODIUM
     Indication: PNEUMONIA PSEUDOMONAL
     Dosage: 1 G/0.5 G, THREE TIMES PER DAY; VIA INFUSION FOR MORE THAN 2 HOURS
     Dates: start: 20190818
  3. ZERBAXA [Suspect]
     Active Substance: CEFTOLOZANE SULFATE\TAZOBACTAM SODIUM
     Indication: PNEUMONIA BACTERIAL
     Dosage: 500 MG/250MG; THREE TIMES A DAY
     Dates: start: 20190819, end: 20190819
  4. TAZOCILLINE [Suspect]
     Active Substance: PIPERACILLIN SODIUM\TAZOBACTAM SODIUM
     Indication: PNEUMONIA BACTERIAL
     Dosage: UNK

REACTIONS (2)
  - Pneumonia [Fatal]
  - Blood sodium increased [Fatal]

NARRATIVE: CASE EVENT DATE: 20190829
